FAERS Safety Report 17895167 (Version 2)
Quarter: 2020Q2

REPORT INFORMATION
  Report Type: Spontaneous
  Country: US (occurrence: US)
  Receive Date: 20200615
  Receipt Date: 20200626
  Transmission Date: 20200714
  Serious: No
  Sender: FDA-Public Use
  Company Number: US-PFIZER INC-2020118799

PATIENT
  Age: 66 Year
  Sex: Male
  Weight: 63.5 kg

DRUGS (4)
  1. PHOSPHOLINE IODIDE [Suspect]
     Active Substance: ECHOTHIOPHATE IODIDE
     Dosage: 1 DROP, 1X/DAY (IN THE RIGHT EYE)
     Route: 031
     Dates: start: 20090409, end: 20200316
  2. PHOSPHOLINE IODIDE [Suspect]
     Active Substance: ECHOTHIOPHATE IODIDE
     Dosage: UNK
  3. PHOSPHOLINE IODIDE [Suspect]
     Active Substance: ECHOTHIOPHATE IODIDE
     Indication: GLAUCOMA
     Dosage: 1 DROP (1 DROP (GTT) EVERY 48 HOURS)
  4. PHOSPHOLINE IODIDE [Suspect]
     Active Substance: ECHOTHIOPHATE IODIDE
     Dosage: 1 DROP, ALTERNATE DAY (IN THE LEFT EYE)
     Route: 031
     Dates: start: 20090409, end: 20200316

REACTIONS (3)
  - Drug ineffective [Unknown]
  - Intentional product misuse [Unknown]
  - Intentional product use issue [Unknown]
